FAERS Safety Report 21161267 (Version 3)
Quarter: 2023Q2

REPORT INFORMATION
  Report Type: Spontaneous
  Country: US (occurrence: US)
  Receive Date: 20220802
  Receipt Date: 20230503
  Transmission Date: 20230722
  Serious: No
  Sender: FDA-Public Use
  Company Number: US-BRISTOL-MYERS SQUIBB COMPANY-2022-079895

PATIENT
  Age: 74 Year
  Sex: Male
  Weight: 74.84 kg

DRUGS (7)
  1. ELIQUIS [Suspect]
     Active Substance: APIXABAN
     Indication: Deep vein thrombosis
     Route: 048
     Dates: start: 20220310
  2. PRAVASTATIN SODIUM [Concomitant]
     Active Substance: PRAVASTATIN SODIUM
     Indication: Product used for unknown indication
  3. ASPIRIN [Concomitant]
     Active Substance: ASPIRIN
     Indication: Product used for unknown indication
     Dosage: 1 TABLET (DELAYED RELEASE) DAILY
     Route: 048
  4. ROSUVASTATIN [Concomitant]
     Active Substance: ROSUVASTATIN
     Indication: Product used for unknown indication
  5. OXYBUTYNIN CHLORIDE [Concomitant]
     Active Substance: OXYBUTYNIN CHLORIDE
     Indication: Bladder spasm
     Dosage: EXTENDED RELEASE 24 HR I TABLET PO DAILY PRN
     Route: 048
  6. Urogesic-Blue [Concomitant]
     Indication: Bladder spasm
     Dosage: 81.6 MG-40.8 MG-10.8 MG-0.12 MG TABLET 1 TABLET PO Q 6 H PRN
     Route: 048
  7. VIAGRA [Concomitant]
     Active Substance: SILDENAFIL CITRATE
     Indication: Product used for unknown indication
     Dosage: 1 TABLET PO 1 HR PRIOR ELIQUIS
     Route: 048

REACTIONS (1)
  - Off label use [Unknown]
